FAERS Safety Report 4697988-0 (Version None)
Quarter: 2005Q2

REPORT INFORMATION
  Report Type: 
  Country: None (occurrence: None)
  Receive Date: 20050619
  Receipt Date: 20050619
  Transmission Date: 20051028
  Serious: Yes (Other)
  Sender: FDA-Public Use
  Company Number: None

PATIENT
  Sex: Male
  Weight: 71.2147 kg

DRUGS (1)
  1. TEGRETOL [Suspect]
     Indication: CONVULSION
     Dosage: 200 MG TID PO
     Route: 048

REACTIONS (2)
  - RASH [None]
  - THERAPEUTIC RESPONSE UNEXPECTED WITH DRUG SUBSTITUTION [None]
